FAERS Safety Report 8374298-1 (Version None)
Quarter: 2012Q2

REPORT INFORMATION
  Report Type: 
  Country: None (occurrence: None)
  Receive Date: 20120521
  Receipt Date: 20120518
  Transmission Date: 20120825
  Serious: Yes (Other)
  Sender: FDA-Public Use
  Company Number: PHEH2012US009527

PATIENT
  Sex: Female

DRUGS (1)
  1. GILENYA [Suspect]
     Indication: MULTIPLE SCLEROSIS
     Dosage: 0.5 MG, QD
     Route: 048
     Dates: start: 20120502, end: 20120511

REACTIONS (9)
  - STRESS [None]
  - CHEST PAIN [None]
  - BLOOD PRESSURE INCREASED [None]
  - AGITATION [None]
  - HYPERHIDROSIS [None]
  - ELECTROCARDIOGRAM ABNORMAL [None]
  - DYSPNOEA [None]
  - PALPITATIONS [None]
  - FATIGUE [None]
